FAERS Safety Report 5878588-3 (Version None)
Quarter: 2008Q3

REPORT INFORMATION
  Report Type: 
  Country: None (occurrence: None)
  Receive Date: 20080909
  Receipt Date: 20080902
  Transmission Date: 20090109
  Serious: Yes (Hospitalization)
  Sender: FDA-Public Use
  Company Number: 2008SP017929

PATIENT
  Age: 53 Year
  Sex: Female
  Weight: 72 kg

DRUGS (5)
  1. VIRAFERONPEG [Suspect]
     Indication: HEPATITIS C
     Dosage: 0.5 MCG/KG; QW;
     Dates: start: 20070913
  2. BLINDED PEGINTERFERON ALFA-2B (S-P) [Suspect]
     Indication: HEPATITIS C
     Dosage: 1000 MG; QD;
     Dates: start: 20070913
  3. DOLIPRANE [Concomitant]
  4. OFLOXACIN [Concomitant]
  5. AMOXICILLIN [Concomitant]

REACTIONS (4)
  - BLADDER SPHINCTER ATONY [None]
  - CYSTOCELE [None]
  - DISEASE RECURRENCE [None]
  - URINARY TRACT INFECTION [None]
